FAERS Safety Report 21865279 (Version 1)
Quarter: 2023Q1

REPORT INFORMATION
  Report Type: Other
  Country: JP (occurrence: JP)
  Receive Date: 20230116
  Receipt Date: 20230116
  Transmission Date: 20230417
  Serious: Yes (Other)
  Sender: FDA-Public Use
  Company Number: JP-CHUGAI-2023000593

PATIENT
  Age: 63 Year
  Sex: Male

DRUGS (1)
  1. TECENTRIQ [Suspect]
     Active Substance: ATEZOLIZUMAB
     Indication: Lung neoplasm malignant
     Route: 041

REACTIONS (4)
  - Diabetic nephropathy [Unknown]
  - Glomerulonephritis rapidly progressive [Unknown]
  - Tubulointerstitial nephritis [Unknown]
  - Mesangioproliferative glomerulonephritis [Unknown]
